FAERS Safety Report 9844758 (Version 1)
Quarter: 2014Q1

REPORT INFORMATION
  Report Type: Spontaneous
  Country: US (occurrence: None)
  Receive Date: 20140123
  Receipt Date: 20140123
  Transmission Date: 20141002
  Serious: Yes (Life-Threatening, Hospitalization, Disabling)
  Sender: FDA-Public Use
  Company Number: None

PATIENT
  Age: 51 Year
  Sex: Female
  Weight: 70.31 kg

DRUGS (1)
  1. CHANTIX [Suspect]
     Indication: SMOKING CESSATION THERAPY
     Dates: start: 20080101, end: 20080521

REACTIONS (19)
  - Depression [None]
  - Loss of consciousness [None]
  - Intentional self-injury [None]
  - Aggression [None]
  - Legal problem [None]
  - Suicide attempt [None]
  - Transient ischaemic attack [None]
  - Cerebrovascular accident [None]
  - Amnesia [None]
  - Neuralgia [None]
  - Hypoaesthesia [None]
  - Rash [None]
  - Skin swelling [None]
  - Skin discolouration [None]
  - Balance disorder [None]
  - Tremor [None]
  - Ageusia [None]
  - Anosmia [None]
  - Sleep disorder [None]
